FAERS Safety Report 16802126 (Version 3)
Quarter: 2020Q2

REPORT INFORMATION
  Report Type: Spontaneous
  Country: US (occurrence: US)
  Receive Date: 20190912
  Receipt Date: 20200410
  Transmission Date: 20200713
  Serious: Yes (Other)
  Sender: FDA-Public Use
  Company Number: US-SA-2019SA248011

PATIENT
  Age: 83 Year
  Sex: Male

DRUGS (1)
  1. LANTUS SOLOSTAR [Suspect]
     Active Substance: INSULIN GLARGINE
     Indication: TYPE 2 DIABETES MELLITUS
     Dosage: 40 U, HS
     Route: 058

REACTIONS (5)
  - Asthenia [Unknown]
  - Device breakage [Recovered/Resolved]
  - Adverse event [Unknown]
  - Blood glucose decreased [Recovered/Resolved]
  - Incorrect dose administered by device [Recovered/Resolved]
